FAERS Safety Report 22275060 (Version 1)
Quarter: 2023Q2

REPORT INFORMATION
  Report Type: Spontaneous
  Country: US (occurrence: US)
  Receive Date: 20230502
  Receipt Date: 20230502
  Transmission Date: 20230721
  Serious: No
  Sender: FDA-Public Use
  Company Number: US-PFIZER INC-PV202300075533

PATIENT
  Sex: Female

DRUGS (4)
  1. ENBREL [Suspect]
     Active Substance: ETANERCEPT
     Indication: Product used for unknown indication
     Dosage: UNK
     Route: 065
  2. XELJANZ XR [Suspect]
     Active Substance: TOFACITINIB CITRATE
     Indication: Rheumatoid arthritis
     Dosage: 11 MG, 1X/DAY (11 MG, EVERY 1 DAYS)
     Route: 048
  3. HUMIRA [Suspect]
     Active Substance: ADALIMUMAB
     Indication: Rheumatoid arthritis
     Dosage: UNK
     Route: 058
  4. VOLTAREN [Concomitant]
     Active Substance: DICLOFENAC SODIUM
     Dosage: UNK

REACTIONS (1)
  - Drug ineffective [Unknown]

NARRATIVE: CASE EVENT DATE: 20230101
